FAERS Safety Report 14310250 (Version 1)
Quarter: 2017Q4

REPORT INFORMATION
  Report Type: Spontaneous
  Country: US (occurrence: US)
  Receive Date: 20171220
  Receipt Date: 20171220
  Transmission Date: 20180321
  Serious: Yes (Hospitalization, Other)
  Sender: FDA-Public Use
  Company Number: US-MIST-TIR-2017-1174

PATIENT
  Age: 53 Year
  Sex: Female

DRUGS (2)
  1. LEVOTHYROXINE. [Suspect]
     Active Substance: LEVOTHYROXINE
     Indication: AUTOIMMUNE THYROIDITIS
     Dosage: 75MCG DAILY
     Route: 065
  2. LIOTHYRONINE [Suspect]
     Active Substance: LIOTHYRONINE
     Indication: AUTOIMMUNE THYROIDITIS
     Dosage: 25MCG DAILY
     Route: 065

REACTIONS (5)
  - Thyrotoxic crisis [Recovered/Resolved]
  - Atrial fibrillation [Recovered/Resolved]
  - Hyperthyroidism [Recovered/Resolved]
  - Accidental overdose [Recovered/Resolved]
  - Product preparation error [Unknown]
